FAERS Safety Report 18668389 (Version 1)
Quarter: 2020Q4

REPORT INFORMATION
  Report Type: Spontaneous
  Country: US (occurrence: US)
  Receive Date: 20201225
  Receipt Date: 20201225
  Transmission Date: 20210114
  Serious: Yes (Life-Threatening, Hospitalization, Other)
  Sender: FDA-Public Use
  Company Number: None

PATIENT
  Age: 38 Year
  Sex: Female
  Weight: 103.5 kg

DRUGS (6)
  1. MAGNESIUM [Concomitant]
     Active Substance: MAGNESIUM
  2. CALCIUM [Concomitant]
     Active Substance: CALCIUM
  3. IRON [Concomitant]
     Active Substance: IRON
  4. MONTELUKAST [Suspect]
     Active Substance: MONTELUKAST SODIUM
     Indication: HYPERSENSITIVITY
     Dates: start: 20201029, end: 20201101
  5. VITAMIN B12 [Concomitant]
     Active Substance: CYANOCOBALAMIN
  6. ZINC. [Concomitant]
     Active Substance: ZINC

REACTIONS (11)
  - Hypoaesthesia [None]
  - Urticaria [None]
  - Anaphylactic reaction [None]
  - Panic attack [None]
  - Suicidal ideation [None]
  - Depression [None]
  - Paraesthesia [None]
  - Blister [None]
  - Myalgia [None]
  - Swelling [None]
  - Rash [None]

NARRATIVE: CASE EVENT DATE: 20201113
